FAERS Safety Report 9768643 (Version 1)
Quarter: 2013Q4

REPORT INFORMATION
  Report Type: Spontaneous
  Country: US (occurrence: US)
  Receive Date: 20131218
  Receipt Date: 20131218
  Transmission Date: 20140711
  Serious: Yes (Other)
  Sender: FDA-Public Use
  Company Number: US-ROCHE-1319677

PATIENT
  Age: 74 Year
  Sex: Male

DRUGS (1)
  1. VEMURAFENIB [Suspect]
     Indication: MALIGNANT MELANOMA
     Route: 065

REACTIONS (2)
  - Fatigue [Unknown]
  - Gamma-glutamyltransferase increased [Unknown]
